FAERS Safety Report 13800237 (Version 1)
Quarter: 2017Q3

REPORT INFORMATION
  Report Type: Spontaneous
  Country: US (occurrence: US)
  Receive Date: 20170727
  Receipt Date: 20170727
  Transmission Date: 20171127
  Serious: No
  Sender: FDA-Public Use
  Company Number: US-JNJFOC-20170701843

PATIENT
  Age: 47 Year
  Sex: Female
  Weight: 61.24 kg

DRUGS (4)
  1. WOMENS ROGAINE UNSCENTED [Suspect]
     Active Substance: MINOXIDIL
     Route: 061
  2. NATURE-THROID [Concomitant]
     Active Substance: THYROID, PORCINE
     Indication: THYROID DISORDER
     Route: 065
  3. WOMENS ROGAINE UNSCENTED [Suspect]
     Active Substance: MINOXIDIL
     Indication: ALOPECIA
     Dosage: 1 CAPFUL
     Route: 061
  4. AMITIZA [Concomitant]
     Active Substance: LUBIPROSTONE
     Indication: GASTRIC DISORDER
     Dosage: 2 WEEKS
     Route: 065
     Dates: start: 20170607

REACTIONS (2)
  - Overdose [Unknown]
  - Alopecia [Not Recovered/Not Resolved]
